FAERS Safety Report 9465915 (Version 2)
Quarter: 2013Q3

REPORT INFORMATION
  Report Type: Spontaneous
  Country: US (occurrence: US)
  Receive Date: 20130820
  Receipt Date: 20130918
  Transmission Date: 20140515
  Serious: Yes (Hospitalization)
  Sender: FDA-Public Use
  Company Number: US-FRI-1000047763

PATIENT
  Age: 23 Year
  Sex: Female
  Weight: 67.1 kg

DRUGS (4)
  1. VIIBRYD [Suspect]
     Indication: DEPRESSION
     Dosage: 40 MG
     Route: 048
     Dates: start: 20130604, end: 20130729
  2. VIIBRYD [Suspect]
     Indication: GENERALISED ANXIETY DISORDER
  3. XANAX [Concomitant]
     Indication: GENERALISED ANXIETY DISORDER
     Dosage: 0.5 MG THREE TIMES DAILY AS NEEDED
     Dates: start: 20130514
  4. ADDERALL XR [Concomitant]
     Dosage: 30 MG
     Dates: start: 201202

REACTIONS (3)
  - Suicidal ideation [Recovered/Resolved]
  - Anxiety [Recovered/Resolved]
  - Agitation [Recovered/Resolved]
